FAERS Safety Report 21213214 (Version 4)
Quarter: 2022Q4

REPORT INFORMATION
  Report Type: Spontaneous
  Country: JP (occurrence: JP)
  Receive Date: 20220815
  Receipt Date: 20221020
  Transmission Date: 20230113
  Serious: Yes (Hospitalization)
  Sender: FDA-Public Use
  Company Number: JP-MYOVANT SCIENCES GMBH-2022MYSCI0700729

PATIENT
  Age: 46 Year
  Sex: Female

DRUGS (9)
  1. RELUGOLIX [Suspect]
     Active Substance: RELUGOLIX
     Indication: Heavy menstrual bleeding
     Dosage: 40 MILLIGRAM, QD
     Route: 048
     Dates: start: 20220503, end: 20220519
  2. RELUGOLIX [Suspect]
     Active Substance: RELUGOLIX
     Indication: Dysmenorrhoea
  3. RELUGOLIX [Suspect]
     Active Substance: RELUGOLIX
     Indication: Adenomyosis
  4. RELUGOLIX [Suspect]
     Active Substance: RELUGOLIX
     Indication: Uterine leiomyoma
  5. FLUTICASONE FUROATE\VILANTEROL TRIFENATATE [Concomitant]
     Active Substance: FLUTICASONE FUROATE\VILANTEROL TRIFENATATE
     Indication: Asthma
     Dosage: 1 DOSAGE FORM, QD
     Route: 055
     Dates: start: 20200708
  6. DESLORATADINE [Concomitant]
     Active Substance: DESLORATADINE
     Indication: Asthma
     Dosage: 5 MILLIGRAM, QD
     Route: 048
     Dates: start: 20200108
  7. LOXOPROFEN SODIUM [Concomitant]
     Active Substance: LOXOPROFEN SODIUM
     Indication: Headache
     Dosage: 180 MILLIGRAM, QD
     Route: 048
     Dates: start: 20120528
  8. PROCATEROL HYDROCHLORIDE [Concomitant]
     Active Substance: PROCATEROL HYDROCHLORIDE
     Indication: Asthma
     Dosage: UNK
     Route: 055
     Dates: start: 20200403
  9. FERROUS SULFATE [Concomitant]
     Active Substance: FERROUS SULFATE
     Indication: Iron deficiency anaemia
     Dosage: 105 MILLIGRAM, QD
     Route: 048
     Dates: start: 202001, end: 20220515

REACTIONS (1)
  - Generalised anxiety disorder [Recovered/Resolved with Sequelae]

NARRATIVE: CASE EVENT DATE: 20220519
